FAERS Safety Report 8124203 (Version 6)
Quarter: 2013Q3

REPORT INFORMATION
  Report Type: Spontaneous
  Country: NO (occurrence: NO)
  Receive Date: 20110907
  Receipt Date: 20130926
  Transmission Date: 20140515
  Serious: Yes (Hospitalization, Disabling)
  Sender: FDA-Public Use
  Company Number: NO-AMGEN-NORSP2011017040

PATIENT
  Age: 74 Year
  Sex: Female

DRUGS (11)
  1. PROLIA [Suspect]
     Indication: OSTEOPOROSIS POSTMENOPAUSAL
     Dosage: 60 MG, Q6MO
     Route: 058
     Dates: start: 20110310
  2. CALCIGRAN FORTE [Concomitant]
  3. SERETIDE [Concomitant]
     Indication: LUNG DISORDER
     Dosage: UNK UNK, BID
     Route: 055
  4. SPIRIVA [Concomitant]
     Dosage: 18 MUG, UNK
     Route: 055
  5. VENTOLINE [Concomitant]
     Dosage: UNK UNK, QD
     Route: 055
  6. NORVASC [Concomitant]
     Dosage: 10 MG, UNK
  7. BETOLVEX                           /00056201/ [Concomitant]
     Dosage: UNK
     Dates: start: 20110210
  8. NOBLIGAN [Concomitant]
     Dosage: 50 MG, UNK
  9. IMOVANE [Concomitant]
     Dosage: 7.5 MG, UNK
     Route: 048
     Dates: start: 20110910
  10. DIOVAN [Concomitant]
     Dosage: 160 MG, QD
     Dates: start: 201205
  11. PLAVIX [Concomitant]
     Dosage: UNK
     Dates: start: 201205, end: 201205

REACTIONS (31)
  - Transient ischaemic attack [Recovered/Resolved]
  - Activities of daily living impaired [Unknown]
  - Hypoaesthesia [Not Recovered/Not Resolved]
  - Inappropriate antidiuretic hormone secretion [Recovered/Resolved]
  - Pain in extremity [Not Recovered/Not Resolved]
  - Skin haemorrhage [Unknown]
  - Bone pain [Recovered/Resolved]
  - Skin discolouration [Unknown]
  - Vision blurred [Unknown]
  - Eye pain [Unknown]
  - Depression [Unknown]
  - Abdominal pain upper [Unknown]
  - Headache [Unknown]
  - Type III immune complex mediated reaction [Unknown]
  - Arthropod bite [Unknown]
  - Mouth ulceration [Recovering/Resolving]
  - Pollakiuria [Unknown]
  - Pyrexia [Recovered/Resolved]
  - Nausea [Unknown]
  - Flushing [Unknown]
  - Weight decreased [Unknown]
  - Pharyngitis [Unknown]
  - Fatigue [Unknown]
  - Diarrhoea [Unknown]
  - Myalgia [Unknown]
  - Pruritus [Unknown]
  - Upper respiratory tract infection [Unknown]
  - Gait disturbance [Unknown]
  - Paraesthesia [Not Recovered/Not Resolved]
  - Urinary incontinence [Not Recovered/Not Resolved]
  - Rash [Unknown]
